FAERS Safety Report 9401464 (Version 2)
Quarter: 2013Q3

REPORT INFORMATION
  Report Type: Report from Study
  Country: JP (occurrence: JP)
  Receive Date: 20130716
  Receipt Date: 20130821
  Transmission Date: 20140515
  Serious: Yes (Hospitalization)
  Sender: FDA-Public Use
  Company Number: JP-ROCHE-1248109

PATIENT
  Sex: Female
  Weight: 35 kg

DRUGS (24)
  1. METHOXY POLYETHYLENE GLYCOL-EPOETIN BETA [Suspect]
     Indication: NEPHROGENIC ANAEMIA
     Route: 042
     Dates: start: 20120403, end: 20120529
  2. METHOXY POLYETHYLENE GLYCOL-EPOETIN BETA [Suspect]
     Indication: NEPHROGENIC ANAEMIA
     Route: 042
     Dates: start: 20120612, end: 20120821
  3. METHOXY POLYETHYLENE GLYCOL-EPOETIN BETA [Suspect]
     Indication: NEPHROGENIC ANAEMIA
     Route: 042
     Dates: start: 20120911, end: 20121015
  4. METHOXY POLYETHYLENE GLYCOL-EPOETIN BETA [Suspect]
     Indication: NEPHROGENIC ANAEMIA
     Route: 042
     Dates: start: 20121016, end: 20121219
  5. METHOXY POLYETHYLENE GLYCOL-EPOETIN BETA [Suspect]
     Indication: NEPHROGENIC ANAEMIA
     Route: 042
     Dates: start: 20121220, end: 20130107
  6. METHOXY POLYETHYLENE GLYCOL-EPOETIN BETA [Suspect]
     Indication: NEPHROGENIC ANAEMIA
     Route: 042
     Dates: start: 20130108, end: 20130204
  7. METHOXY POLYETHYLENE GLYCOL-EPOETIN BETA [Suspect]
     Indication: NEPHROGENIC ANAEMIA
     Route: 042
     Dates: start: 20130205
  8. GLYCEOL [Concomitant]
     Indication: PROPHYLAXIS
     Dosage: AT EACH DIALYSIS
     Route: 041
  9. FESIN (JAPAN) [Concomitant]
     Route: 042
     Dates: start: 20120501, end: 20120829
  10. ARTIST [Concomitant]
     Route: 048
  11. BAYASPIRIN [Concomitant]
     Route: 048
  12. DEPAS [Concomitant]
     Indication: PROPHYLAXIS
     Route: 048
  13. RYTHMODAN [Concomitant]
     Route: 048
  14. FRANDOL [Concomitant]
     Route: 062
  15. PARIET [Concomitant]
     Indication: PROPHYLAXIS
     Route: 048
  16. METHYCOBAL [Concomitant]
     Indication: PROPHYLAXIS
     Route: 048
  17. GASMOTIN [Concomitant]
     Indication: PROPHYLAXIS
     Route: 048
  18. THIODERON [Concomitant]
     Route: 048
  19. LYRICA [Concomitant]
     Route: 048
  20. RISUMIC [Concomitant]
     Indication: PROPHYLAXIS
     Dosage: DIALYSIS DAY^S MORNING
     Route: 048
  21. ACONITE ROOT [Concomitant]
     Route: 048
  22. LAXOBERON [Concomitant]
     Indication: PROPHYLAXIS
     Route: 048
  23. MAGMITT [Concomitant]
     Indication: PROPHYLAXIS
     Route: 048
  24. TRAMCET [Concomitant]
     Dosage: AT EACH DIALYSIS
     Route: 048
     Dates: start: 20120605

REACTIONS (2)
  - Fatigue [Unknown]
  - Chest discomfort [Unknown]
